FAERS Safety Report 20742474 (Version 1)
Quarter: 2022Q2

REPORT INFORMATION
  Report Type: Spontaneous
  Country: US (occurrence: US)
  Receive Date: 20220424
  Receipt Date: 20220424
  Transmission Date: 20220720
  Serious: No
  Sender: FDA-Public Use
  Company Number: US-BRISTOL-MYERS SQUIBB COMPANY-2022-025130

PATIENT
  Sex: Male
  Weight: 67.585 kg

DRUGS (1)
  1. REVLIMID [Suspect]
     Active Substance: LENALIDOMIDE
     Indication: Plasma cell myeloma
     Dosage: 21 D EVERY 28 D
     Route: 048

REACTIONS (2)
  - Oropharyngeal pain [Unknown]
  - Musculoskeletal discomfort [Unknown]
